FAERS Safety Report 4730599-7 (Version None)
Quarter: 2005Q3

REPORT INFORMATION
  Report Type: 
  Country: None (occurrence: None)
  Receive Date: 20050725
  Receipt Date: 20050314
  Transmission Date: 20060218
  Serious: No
  Sender: FDA-Public Use
  Company Number: USA050393103

PATIENT
  Age: 13 Year
  Sex: Female

DRUGS (3)
  1. STRATTERA [Suspect]
     Indication: ATTENTION DEFICIT/HYPERACTIVITY DISORDER
     Dosage: 40 MG/1 IN THE MORNING
  2. CLARITIN [Concomitant]
  3. FLOVENT [Concomitant]

REACTIONS (1)
  - RETCHING [None]
